FAERS Safety Report 12405656 (Version 1)
Quarter: 2016Q2

REPORT INFORMATION
  Report Type: Spontaneous
  Country: US (occurrence: None)
  Receive Date: 20160525
  Receipt Date: 20160525
  Transmission Date: 20160815
  Serious: No
  Sender: FDA-Public Use
  Company Number: None

PATIENT
  Age: 59 Year
  Sex: Male

DRUGS (3)
  1. SOVALDI [Suspect]
     Active Substance: SOFOSBUVIR
     Indication: CHRONIC HEPATITIS C
     Route: 048
     Dates: start: 20160325
  2. RIBAVIRIN 200MG TAB [Suspect]
     Active Substance: RIBAVIRIN
     Indication: CHRONIC HEPATITIS C
     Route: 048
     Dates: start: 20160325
  3. KETOPROFEN. [Concomitant]
     Active Substance: KETOPROFEN

REACTIONS (2)
  - Dizziness [None]
  - Anaemia [None]

NARRATIVE: CASE EVENT DATE: 201605
